FAERS Safety Report 9040703 (Version 1)
Quarter: 2013Q1

REPORT INFORMATION
  Report Type: Report from Study
  Country: US (occurrence: US)
  Receive Date: 20130129
  Receipt Date: 20130129
  Transmission Date: 20140127
  Serious: No
  Sender: FDA-Public Use
  Company Number: US-ABBOTT-11P-163-0886982-00

PATIENT
  Age: 48 Year
  Sex: Female

DRUGS (5)
  1. HUMIRA 40 MG/0.8 ML PEN [Suspect]
     Indication: RHEUMATOID ARTHRITIS
     Dates: start: 20111213
  2. LISINOPRIL [Concomitant]
     Indication: HYPERTENSION
  3. CELEXA [Concomitant]
     Indication: DEPRESSION
  4. PREDNISONE [Concomitant]
     Indication: PRODUCT USED FOR UNKNOWN INDICATION
  5. ADVAIR [Concomitant]
     Indication: ASTHMA

REACTIONS (11)
  - Hypoaesthesia [Unknown]
  - Wound [Unknown]
  - Pyrexia [Unknown]
  - Cough [None]
  - Sinus congestion [Unknown]
  - Poor quality sleep [Unknown]
  - Eating disorder [Unknown]
  - Dizziness [Unknown]
  - Wheezing [Not Recovered/Not Resolved]
  - Malaise [Not Recovered/Not Resolved]
  - Pharyngeal oedema [Not Recovered/Not Resolved]
